FAERS Safety Report 5191328-9 (Version None)
Quarter: 2006Q4

REPORT INFORMATION
  Report Type: 
  Country: None (occurrence: None)
  Receive Date: 20061226
  Receipt Date: 20050623
  Transmission Date: 20070319
  Serious: Yes (Hospitalization, Disabling)
  Sender: FDA-Public Use
  Company Number: US-ROCHE-408927

PATIENT
  Age: 23 Year
  Sex: Female
  Weight: 56.7 kg

DRUGS (2)
  1. ACCUTANE [Suspect]
     Route: 048
     Dates: start: 19961001, end: 19970321
  2. ACCUTANE [Suspect]
     Route: 048
     Dates: start: 19970527, end: 19970928

REACTIONS (40)
  - ACTIVITIES OF DAILY LIVING IMPAIRED [None]
  - ANAEMIA [None]
  - ANHEDONIA [None]
  - ANXIETY [None]
  - ARTHRITIS [None]
  - BACK PAIN [None]
  - BLOOD CHOLESTEROL INCREASED [None]
  - BLOOD UREA DECREASED [None]
  - CHEST DISCOMFORT [None]
  - COLITIS [None]
  - COLITIS ULCERATIVE [None]
  - CONDITION AGGRAVATED [None]
  - COUGH [None]
  - DEFORMITY [None]
  - DRUG EXPOSURE DURING PREGNANCY [None]
  - EAR DISCOMFORT [None]
  - ECONOMIC PROBLEM [None]
  - EMOTIONAL DISTRESS [None]
  - GASTROENTERITIS [None]
  - GASTROINTESTINAL DISORDER [None]
  - HEADACHE [None]
  - HEPATITIS ACUTE [None]
  - HYDRONEPHROSIS [None]
  - HYDROURETER [None]
  - IMPAIRED WORK ABILITY [None]
  - IMPATIENCE [None]
  - INFLAMMATORY BOWEL DISEASE [None]
  - INJURY [None]
  - INTESTINAL HAEMORRHAGE [None]
  - IRRITABILITY [None]
  - MULTI-ORGAN DISORDER [None]
  - NECK PAIN [None]
  - OESOPHAGEAL PAIN [None]
  - PAIN [None]
  - PAIN IN JAW [None]
  - PREGNANCY [None]
  - RECTAL HAEMORRHAGE [None]
  - SINUSITIS [None]
  - STRESS AT WORK [None]
  - WHITE BLOOD CELL COUNT DECREASED [None]
